FAERS Safety Report 18370167 (Version 1)
Quarter: 2020Q4

REPORT INFORMATION
  Report Type: Spontaneous
  Country: US (occurrence: US)
  Receive Date: 20201012
  Receipt Date: 20201012
  Transmission Date: 20210114
  Serious: No
  Sender: FDA-Public Use
  Company Number: US-ASTRAZENECA-2020SF28771

PATIENT
  Age: 29 Year
  Sex: Female

DRUGS (4)
  1. SEROQUEL [Suspect]
     Active Substance: QUETIAPINE FUMARATE
     Indication: BIPOLAR DISORDER
     Dosage: 200.0MG UNKNOWN
     Route: 048
     Dates: start: 202001
  2. SEROQUEL [Suspect]
     Active Substance: QUETIAPINE FUMARATE
     Indication: BIPOLAR DISORDER
     Dosage: 25.0MG UNKNOWN
     Route: 048
     Dates: start: 201912
  3. SEROQUEL [Suspect]
     Active Substance: QUETIAPINE FUMARATE
     Indication: BIPOLAR DISORDER
     Dosage: 200.0MG UNKNOWN
     Route: 048
  4. SEROQUEL [Suspect]
     Active Substance: QUETIAPINE FUMARATE
     Indication: BIPOLAR DISORDER
     Dosage: 100MG IN THE AM AND 100 MG AT NIGHT UNKNOWN
     Route: 048

REACTIONS (5)
  - Feeling hot [Unknown]
  - Insomnia [Unknown]
  - Aggression [Unknown]
  - Confusional state [Unknown]
  - Off label use [Unknown]
